FAERS Safety Report 5816097-8 (Version None)
Quarter: 2008Q3

REPORT INFORMATION
  Report Type: 
  Country: None (occurrence: None)
  Receive Date: 20080716
  Receipt Date: 20080716
  Transmission Date: 20090109
  Serious: Yes (Other)
  Sender: FDA-Public Use
  Company Number: None

PATIENT
  Age: 87 Year
  Sex: Female
  Weight: 61.2356 kg

DRUGS (1)
  1. ULTRASHEER DRY-TOUCH SUNBLOCK SPF 55 NEUTROGENA [Suspect]
     Dosage: ABOUT 15 ML ONLY ONE TIME TOP
     Route: 061
     Dates: start: 20080712, end: 20080712

REACTIONS (3)
  - GENERALISED ERYTHEMA [None]
  - OEDEMA [None]
  - SKIN WARM [None]
